FAERS Safety Report 17703870 (Version 1)
Quarter: 2020Q2

REPORT INFORMATION
  Report Type: Spontaneous
  Country: US (occurrence: US)
  Receive Date: 20200423
  Receipt Date: 20200423
  Transmission Date: 20200714
  Serious: Yes (Hospitalization)
  Sender: FDA-Public Use
  Company Number: None

PATIENT
  Age: 58 Year
  Sex: Male
  Weight: 73.03 kg

DRUGS (2)
  1. OXYCODONE (OXYCODONE HCL 15MG TAB, SA) [Suspect]
     Active Substance: OXYCODONE HYDROCHLORIDE
     Indication: PAIN
     Route: 048
     Dates: start: 20150511
  2. PREGABALIN (PREGABALIN 200MG CAP, ORAL) [Suspect]
     Active Substance: PREGABALIN
     Indication: PAIN
     Route: 048
     Dates: start: 20091030

REACTIONS (9)
  - Drug interaction [None]
  - Mental status changes [None]
  - Sedation [None]
  - Unresponsive to stimuli [None]
  - Respiratory depression [None]
  - Hallucination [None]
  - Toxic encephalopathy [None]
  - Lethargy [None]
  - Confusional state [None]

NARRATIVE: CASE EVENT DATE: 20191121
